FAERS Safety Report 15156035 (Version 5)
Quarter: 2018Q3

REPORT INFORMATION
  Report Type: Report from Study
  Country: CN (occurrence: CN)
  Receive Date: 20180717
  Receipt Date: 20180920
  Transmission Date: 20181010
  Serious: Yes (Hospitalization)
  Sender: FDA-Public Use
  Company Number: PHHO2018CN008265

PATIENT
  Age: 29 Year
  Sex: Male
  Weight: 43.5 kg

DRUGS (2)
  1. AIN457 [Suspect]
     Active Substance: SECUKINUMAB
     Indication: ANKYLOSING SPONDYLITIS
     Dosage: 150 MG, UNK
     Route: 058
     Dates: start: 20170621, end: 20180525
  2. MELOXICAM. [Concomitant]
     Active Substance: MELOXICAM
     Indication: ANKYLOSING SPONDYLITIS
     Dosage: 7.5 MG, QD
     Route: 048
     Dates: start: 20171111

REACTIONS (1)
  - Pneumonia mycoplasmal [Recovering/Resolving]

NARRATIVE: CASE EVENT DATE: 20180418
